FAERS Safety Report 5032579-3 (Version None)
Quarter: 2006Q2

REPORT INFORMATION
  Report Type: 
  Country: None (occurrence: None)
  Receive Date: 20060620
  Receipt Date: 20060620
  Transmission Date: 20061013
  Serious: No
  Sender: FDA-Public Use
  Company Number: None

PATIENT
  Age: 30 Year
  Sex: Female
  Weight: 68.0396 kg

DRUGS (1)
  1. LARIAM [Suspect]
     Indication: MALARIA
     Dosage: 250 MG ONE TIME DOSE PO
     Route: 048
     Dates: start: 20060401

REACTIONS (24)
  - ABNORMAL SENSATION IN EYE [None]
  - ANHIDROSIS [None]
  - ANXIETY [None]
  - ASTHENIA [None]
  - AURICULAR SWELLING [None]
  - BLINDNESS [None]
  - CONFUSIONAL STATE [None]
  - DEPRESSION [None]
  - DISORIENTATION [None]
  - DIZZINESS [None]
  - FATIGUE [None]
  - FEELING COLD [None]
  - HYPOAESTHESIA [None]
  - INTRACRANIAL PRESSURE INCREASED [None]
  - MENSTRUAL DISORDER [None]
  - MOOD SWINGS [None]
  - MUSCLE SPASMS [None]
  - NERVOUS SYSTEM DISORDER [None]
  - PARAESTHESIA [None]
  - PARANOIA [None]
  - PHARYNGOLARYNGEAL PAIN [None]
  - SENSORY LOSS [None]
  - SIMPLE PARTIAL SEIZURES [None]
  - SLEEP DISORDER [None]
